FAERS Safety Report 9883217 (Version 1)
Quarter: 2014Q1

REPORT INFORMATION
  Report Type: Spontaneous
  Country: IT (occurrence: IT)
  Receive Date: 20140208
  Receipt Date: 20140208
  Transmission Date: 20141002
  Serious: Yes (Other)
  Sender: FDA-Public Use
  Company Number: IT-MYLANLABS-2014S1001986

PATIENT
  Age: 63 Year
  Sex: Male

DRUGS (2)
  1. METFORMIN [Suspect]
     Indication: DIABETES MELLITUS
     Route: 048
     Dates: start: 20131125, end: 20131127
  2. KARVEZIDE [Concomitant]
     Indication: HYPERTENSION
     Dosage: 300 MG / 12.5 MG TABLETS
     Route: 048

REACTIONS (3)
  - Oedema peripheral [Recovered/Resolved]
  - Laryngeal oedema [Recovered/Resolved]
  - Respiratory fatigue [Recovered/Resolved]
